FAERS Safety Report 7661026-8 (Version None)
Quarter: 2011Q3

REPORT INFORMATION
  Report Type: 
  Country: None (occurrence: None)
  Receive Date: 20110805
  Receipt Date: 20101007
  Transmission Date: 20111222
  Serious: No
  Sender: FDA-Public Use
  Company Number: US-ABBOTT-10P-163-0677408-00

PATIENT
  Sex: Female

DRUGS (2)
  1. NIASPAN [Suspect]
     Indication: BLOOD CHOLESTEROL
     Dates: start: 20100201
  2. NIASPAN [Suspect]
     Dates: end: 20101007

REACTIONS (3)
  - MUSCLE SPASMS [None]
  - DIARRHOEA [None]
  - FEELING ABNORMAL [None]
